FAERS Safety Report 21577325 (Version 2)
Quarter: 2022Q4

REPORT INFORMATION
  Report Type: Report from Study
  Country: IT (occurrence: IT)
  Receive Date: 20221110
  Receipt Date: 20221221
  Transmission Date: 20230112
  Serious: Yes (Hospitalization)
  Sender: FDA-Public Use
  Company Number: None

PATIENT
  Age: 92 Year
  Sex: Male

DRUGS (7)
  1. IBUPROFEN [Interacting]
     Active Substance: IBUPROFEN
     Indication: COVID-19
     Dosage: 600 MILLIGRAM, BID (1 TABLETX2/DAY)
     Route: 048
     Dates: start: 20220713, end: 20220719
  2. PRADAXA [Interacting]
     Active Substance: DABIGATRAN ETEXILATE MESYLATE
     Indication: Atrial fibrillation
     Dosage: 110 MILLIGRAM, BID (1 TABLET X2/DAY)
     Route: 048
  3. MEDROL [Interacting]
     Active Substance: METHYLPREDNISOLONE
     Indication: COVID-19
     Dosage: 16 MILLIGRAM, QD (1 TABLET/DAY)
     Route: 048
     Dates: start: 20220702, end: 20220722
  4. PANTOPRAZOLE SODIUM [Concomitant]
     Active Substance: PANTOPRAZOLE SODIUM
     Dosage: UNK
     Route: 065
  5. Elopram [Concomitant]
     Dosage: UNK
     Route: 065
  6. LASIX [Concomitant]
     Active Substance: FUROSEMIDE
     Dosage: UNK
     Route: 065
  7. ISOPTIN [Concomitant]
     Active Substance: VERAPAMIL HYDROCHLORIDE
     Dosage: UNK
     Route: 065

REACTIONS (3)
  - Anaemia [Recovering/Resolving]
  - Melaena [Recovering/Resolving]
  - Drug interaction [Recovering/Resolving]

NARRATIVE: CASE EVENT DATE: 20220720
